FAERS Safety Report 8499616-5 (Version None)
Quarter: 2012Q3

REPORT INFORMATION
  Report Type: 
  Country: None (occurrence: None)
  Receive Date: 20120703
  Receipt Date: 20120703
  Transmission Date: 20120928
  Serious: No
  Sender: FDA-Public Use
  Company Number: None

PATIENT
  Age: 76 Year
  Sex: Male

DRUGS (11)
  1. GABAPENTIN [Concomitant]
  2. DRONABINOL [Concomitant]
  3. OMEPRAZOLE [Concomitant]
  4. REVLIMID [Suspect]
     Indication: MULTIPLE MYELOMA
     Dosage: REVLIMID 25 MG DAILY X21D/28D ORALLY
     Route: 048
     Dates: start: 20120201
  5. HYDROMORPHONE HCL [Concomitant]
  6. SIMVASTATIN [Concomitant]
  7. LEVOTHYROXINE SODIUM [Concomitant]
  8. METOPROLOL TARTRATE [Concomitant]
  9. ASPIRIN [Concomitant]
  10. LACTULOSE [Concomitant]
  11. MORPHINE [Concomitant]

REACTIONS (2)
  - WHITE BLOOD CELL COUNT INCREASED [None]
  - NEUTROPHIL COUNT DECREASED [None]
